FAERS Safety Report 16785230 (Version 1)
Quarter: 2019Q3

REPORT INFORMATION
  Report Type: Spontaneous
  Country: JP (occurrence: JP)
  Receive Date: 20190909
  Receipt Date: 20190909
  Transmission Date: 20191005
  Serious: Yes (Death, Other)
  Sender: FDA-Public Use
  Company Number: JP-TEVA-2019-JP-005424J

PATIENT
  Age: 76 Year
  Sex: Male

DRUGS (3)
  1. PAREPLUS [Concomitant]
     Active Substance: AMINO ACIDS\DEXTROSE\ELECTROLYTES NOS\VITAMINS
     Indication: FLUID REPLACEMENT
     Dosage: 1 DOSAGE FORMS DAILY;
     Route: 042
     Dates: start: 20190815, end: 20190901
  2. SOLDEM 3A [Concomitant]
     Active Substance: CARBOHYDRATES\POTASSIUM CHLORIDE\SODIUM CHLORIDE\SODIUM LACTATE
     Indication: FLUID REPLACEMENT
     Dosage: 1 DOSAGE FORMS DAILY;
     Route: 042
     Dates: start: 20190814, end: 20190901
  3. TAKEPRON INTRAVENOUS 30MG. [Suspect]
     Active Substance: LANSOPRAZOLE
     Indication: GASTRIC HAEMORRHAGE
     Dosage: 60 MILLIGRAM DAILY;
     Route: 042
     Dates: start: 20190814, end: 20190901

REACTIONS (1)
  - Gastric haemorrhage [Unknown]
